FAERS Safety Report 5952024-0 (Version None)
Quarter: 2008Q4

REPORT INFORMATION
  Report Type: 
  Country: None (occurrence: None)
  Receive Date: 20081113
  Receipt Date: 20071127
  Transmission Date: 20090506
  Serious: No
  Sender: FDA-Public Use
  Company Number: A0697386A

PATIENT
  Age: 81 Year
  Sex: Female

DRUGS (3)
  1. COREG [Suspect]
     Indication: HYPERTENSION
     Dosage: 12.5MG TWICE PER DAY
     Route: 048
     Dates: start: 20071001
  2. DIOVAN [Concomitant]
  3. SPIRIVA [Concomitant]

REACTIONS (4)
  - COUGH [None]
  - DIZZINESS [None]
  - FATIGUE [None]
  - THERAPEUTIC RESPONSE DECREASED [None]
